FAERS Safety Report 6734999-5 (Version None)
Quarter: 2010Q2

REPORT INFORMATION
  Report Type: 
  Country: None (occurrence: None)
  Receive Date: 20100521
  Receipt Date: 20100517
  Transmission Date: 20101027
  Serious: Yes (Other)
  Sender: FDA-Public Use
  Company Number: US-PFIZER INC-2010037266

PATIENT
  Sex: Male

DRUGS (2)
  1. LOPID [Suspect]
     Indication: BLOOD TRIGLYCERIDES INCREASED
     Dosage: UNK
  2. ATORVASTATIN CALCIUM [Suspect]

REACTIONS (1)
  - GLUCOSE TOLERANCE IMPAIRED [None]
